FAERS Safety Report 7735402-9 (Version None)
Quarter: 2011Q3

REPORT INFORMATION
  Report Type: 
  Country: None (occurrence: None)
  Receive Date: 20110907
  Receipt Date: 20110901
  Transmission Date: 20111222
  Serious: Yes (Death, Hospitalization)
  Sender: FDA-Public Use
  Company Number: US-US-EMD SERONO, INC.-430043P03USA

PATIENT
  Sex: Female
  Weight: 89 kg

DRUGS (4)
  1. COLACE [Concomitant]
     Indication: FUNCTIONAL GASTROINTESTINAL DISORDER
     Route: 048
  2. NOVANTRONE [Suspect]
     Indication: MULTIPLE SCLEROSIS
     Route: 042
     Dates: start: 20020215, end: 20021114
  3. AVONEX [Concomitant]
     Indication: MULTIPLE SCLEROSIS
     Route: 030
     Dates: start: 19971101
  4. DITROPAN XL [Concomitant]
     Indication: BLADDER DYSFUNCTION
     Route: 048

REACTIONS (2)
  - METASTASES TO LUNG [None]
  - ENDOMETRIAL CANCER [None]
